FAERS Safety Report 17870429 (Version 6)
Quarter: 2020Q4

REPORT INFORMATION
  Report Type: Report from Study
  Country: None (occurrence: US)
  Receive Date: 20200608
  Receipt Date: 20201008
  Transmission Date: 20210113
  Serious: Yes (Other)
  Sender: FDA-Public Use
  Company Number: US-INSMED, INC.-US-INS-20-01056

PATIENT
  Age: 34 Year
  Sex: Female

DRUGS (4)
  1. ETHAMBUTOL [Suspect]
     Active Substance: ETHAMBUTOL HYDROCHLORIDE
     Indication: MYCOBACTERIUM AVIUM COMPLEX INFECTION
  2. ARIKAYCE [Suspect]
     Active Substance: AMIKACIN
     Indication: MYCOBACTERIUM AVIUM COMPLEX INFECTION
     Route: 055
     Dates: start: 202002
  3. RIFAMPIN. [Suspect]
     Active Substance: RIFAMPIN
     Indication: MYCOBACTERIUM AVIUM COMPLEX INFECTION
  4. AZITHROMYCIN ANHYDROUS. [Suspect]
     Active Substance: AZITHROMYCIN ANHYDROUS
     Indication: MYCOBACTERIUM AVIUM COMPLEX INFECTION

REACTIONS (12)
  - Oesophagitis [Not Recovered/Not Resolved]
  - Abdominal pain [Recovered/Resolved]
  - Oropharyngeal candidiasis [Recovered/Resolved]
  - Respiratory moniliasis [Recovered/Resolved]
  - Aphonia [Recovered/Resolved]
  - Tinnitus [Not Recovered/Not Resolved]
  - Abdominal pain [Recovered/Resolved]
  - Asthma [Unknown]
  - Oesophageal candidiasis [Recovered/Resolved]
  - Abdominal pain [Not Recovered/Not Resolved]
  - Dysphonia [Recovered/Resolved]
  - Aphonia [Recovered/Resolved]

NARRATIVE: CASE EVENT DATE: 2020
